FAERS Safety Report 10078853 (Version 1)
Quarter: 2014Q2

REPORT INFORMATION
  Report Type: Spontaneous
  Country: US (occurrence: US)
  Receive Date: 20140415
  Receipt Date: 20140415
  Transmission Date: 20141212
  Serious: Yes (Hospitalization)
  Sender: FDA-Public Use
  Company Number: US-B.I. PHARMACEUTICALS,INC./RIDGEFIELD-2014-BI-16172BP

PATIENT
  Age: 80 Year
  Sex: Male
  Weight: 85 kg

DRUGS (4)
  1. SPIRIVA [Suspect]
     Indication: ASTHMA
     Dosage: 18 MCG
     Route: 055
     Dates: start: 2013, end: 20140328
  2. SYMBICORT [Concomitant]
     Indication: ASTHMA
     Route: 055
  3. ALBUTEROL NEBULIZER [Concomitant]
     Indication: ASTHMA
     Route: 055
  4. IPRATROPIUM BROMIDE [Concomitant]
     Indication: ASTHMA
     Route: 055

REACTIONS (7)
  - Dyspnoea [Recovered/Resolved]
  - Wheezing [Recovered/Resolved]
  - Nervousness [Recovered/Resolved]
  - Vision blurred [Not Recovered/Not Resolved]
  - Visual impairment [Not Recovered/Not Resolved]
  - Eye pain [Not Recovered/Not Resolved]
  - Off label use [Not Recovered/Not Resolved]
